FAERS Safety Report 12922944 (Version 2)
Quarter: 2017Q2

REPORT INFORMATION
  Report Type: Spontaneous
  Country: US (occurrence: US)
  Receive Date: 20161109
  Receipt Date: 20170421
  Transmission Date: 20170830
  Serious: Yes (Death, Hospitalization, Other)
  Sender: FDA-Public Use
  Company Number: US-BRISTOL-MYERS SQUIBB COMPANY-BMS-2016-093455

PATIENT
  Sex: Male

DRUGS (2)
  1. ELIQUIS [Suspect]
     Active Substance: APIXABAN
     Indication: CEREBROVASCULAR ACCIDENT PROPHYLAXIS
     Route: 065
  2. ELIQUIS [Suspect]
     Active Substance: APIXABAN
     Indication: PULMONARY EMBOLISM
     Dosage: 2.5 MG, BID
     Route: 048
     Dates: start: 20150827

REACTIONS (11)
  - Acute respiratory failure [Unknown]
  - Acute kidney injury [Unknown]
  - Acute myocardial infarction [Unknown]
  - Death [Fatal]
  - Atrial fibrillation [Unknown]
  - Pulmonary fibrosis [Unknown]
  - Urosepsis [Unknown]
  - Hyperglycaemia [Unknown]
  - Normochromic normocytic anaemia [Unknown]
  - Cardiac failure congestive [Unknown]
  - Leukocytosis [Unknown]
